FAERS Safety Report 9406471 (Version 6)
Quarter: 2014Q2

REPORT INFORMATION
  Report Type: Report from Study
  Country: AU (occurrence: AU)
  Receive Date: 20130718
  Receipt Date: 20140416
  Transmission Date: 20141212
  Serious: Yes (Hospitalization)
  Sender: FDA-Public Use
  Company Number: AU-ROCHE-1249739

PATIENT
  Age: 72 Year
  Sex: Female

DRUGS (3)
  1. ACTEMRA [Suspect]
     Indication: RHEUMATOID ARTHRITIS
     Route: 042
     Dates: start: 20130422
  2. ACTEMRA [Suspect]
     Route: 042
     Dates: start: 20130423, end: 20140411
  3. WARFARIN [Concomitant]
     Indication: CARDIAC PACEMAKER INSERTION
     Route: 048

REACTIONS (8)
  - Heyde^s syndrome [Not Recovered/Not Resolved]
  - Cystitis [Recovering/Resolving]
  - Haemoglobin decreased [Unknown]
  - Cardiac infection [Recovered/Resolved]
  - Cerebrovascular accident [Recovered/Resolved]
  - Pallor [Unknown]
  - Fatigue [Unknown]
  - Anaemia [Unknown]
